FAERS Safety Report 14225367 (Version 1)
Quarter: 2017Q4

REPORT INFORMATION
  Report Type: Spontaneous
  Country: US (occurrence: US)
  Receive Date: 20171126
  Receipt Date: 20171126
  Transmission Date: 20180321
  Serious: Yes (Disabling)
  Sender: FDA-Public Use
  Company Number: None

PATIENT
  Age: 33 Year
  Sex: Female
  Weight: 101.25 kg

DRUGS (1)
  1. HYDROCODON-ACETAMINOPHEN 5-325, 5 MG MALLINCK [Suspect]
     Active Substance: ACETAMINOPHEN\HYDROCODONE
     Indication: TOOTHACHE
     Dosage: QUANTITY:1 TABLET(S);?
     Route: 048
     Dates: start: 20171126, end: 20171126

REACTIONS (2)
  - Rash [None]
  - Feeling hot [None]

NARRATIVE: CASE EVENT DATE: 20171126
